FAERS Safety Report 19021535 (Version 2)
Quarter: 2021Q1

REPORT INFORMATION
  Report Type: Spontaneous
  Country: US (occurrence: US)
  Receive Date: 20210317
  Receipt Date: 20210329
  Transmission Date: 20210420
  Serious: No
  Sender: FDA-Public Use
  Company Number: US-MYLANLABS-2021M1016103

PATIENT
  Sex: Female

DRUGS (1)
  1. PERFOROMIST [Suspect]
     Active Substance: FORMOTEROL FUMARATE DIHYDRATE
     Indication: PRODUCT USED FOR UNKNOWN INDICATION
     Dosage: UNK
     Route: 055

REACTIONS (3)
  - Product dose omission issue [Not Recovered/Not Resolved]
  - Product packaging quantity issue [Not Recovered/Not Resolved]
  - Product dispensing issue [Unknown]

NARRATIVE: CASE EVENT DATE: 20210315
